FAERS Safety Report 7805366-8 (Version None)
Quarter: 2011Q4

REPORT INFORMATION
  Report Type: 
  Country: None (occurrence: None)
  Receive Date: 20111010
  Receipt Date: 20111005
  Transmission Date: 20120403
  Serious: Yes (Hospitalization)
  Sender: FDA-Public Use
  Company Number: US-BAYER-2011-096267

PATIENT
  Sex: Male

DRUGS (1)
  1. AVELOX [Suspect]
     Dosage: DAILY DOSE 400 MG

REACTIONS (3)
  - HYPERSENSITIVITY [None]
  - URTICARIA [None]
  - LIP SWELLING [None]
